FAERS Safety Report 9628260 (Version 3)
Quarter: 2014Q1

REPORT INFORMATION
  Report Type: Spontaneous
  Country: IT (occurrence: IT)
  Receive Date: 20131017
  Receipt Date: 20140204
  Transmission Date: 20141002
  Serious: Yes (Hospitalization)
  Sender: FDA-Public Use
  Company Number: IT-MERCK-1310ITA006948

PATIENT
  Age: 81 Year
  Sex: Female

DRUGS (4)
  1. NEO-LOTAN PLUS 50 MG + 12,5 MG COMPRESSE RIVESTITE CON FILM [Suspect]
     Indication: HYPERTENSION
     Dosage: 1 POSOLOGICAL UNIT 50 MG + 12.5 MG, DAILY
     Route: 048
     Dates: start: 20130801, end: 20130809
  2. AMLODIPINE BESYLATE [Concomitant]
     Indication: HYPERTENSION
     Dosage: 5 MG, UNK
     Route: 048
     Dates: start: 20100101, end: 20130809
  3. CEFTRIAXONE SODIUM [Concomitant]
     Indication: HYPERPYREXIA
     Dosage: UNK
     Dates: start: 20130807, end: 20130809
  4. SUGUAN M [Concomitant]
     Indication: DIABETES MELLITUS
     Dosage: UNK
     Route: 048
     Dates: start: 20100101, end: 20130809

REACTIONS (2)
  - Sopor [Recovered/Resolved]
  - Hyponatraemia [Recovered/Resolved]
